FAERS Safety Report 10239400 (Version 1)
Quarter: 2014Q2

REPORT INFORMATION
  Report Type: Spontaneous
  Country: AR (occurrence: AR)
  Receive Date: 20140616
  Receipt Date: 20140616
  Transmission Date: 20141212
  Serious: Yes (Death)
  Sender: FDA-Public Use
  Company Number: AR-INCYTE CORPORATION-2014IN001653

PATIENT
  Age: 67 Year
  Sex: Female

DRUGS (1)
  1. JAKAVI [Suspect]
     Dosage: 15 MG, EVERY 12 HOURS
     Route: 048
     Dates: start: 201308

REACTIONS (1)
  - Gastrointestinal haemorrhage [Fatal]
